FAERS Safety Report 5906079-X (Version None)
Quarter: 2008Q4

REPORT INFORMATION
  Report Type: 
  Country: None (occurrence: None)
  Receive Date: 20081002
  Receipt Date: 20080922
  Transmission Date: 20090506
  Serious: Yes (Other)
  Sender: FDA-Public Use
  Company Number: PHHY2008JP22589

PATIENT
  Age: 38 Year
  Sex: Female

DRUGS (2)
  1. VOLTAREN [Suspect]
     Dosage: UNK
     Route: 054
     Dates: start: 20010401, end: 20010401
  2. VOLTAREN [Suspect]
     Dosage: UNK
     Route: 048
     Dates: start: 20010401, end: 20010401

REACTIONS (2)
  - CORNEAL DISORDER [None]
  - OCULOMUCOCUTANEOUS SYNDROME [None]
